FAERS Safety Report 11789918 (Version 4)
Quarter: 2018Q2

REPORT INFORMATION
  Report Type: Report from Study
  Country: JP (occurrence: JP)
  Receive Date: 20151201
  Receipt Date: 20180615
  Transmission Date: 20180711
  Serious: Yes (Hospitalization, Other)
  Sender: FDA-Public Use
  Company Number: JP-ASTELLAS-2010JP001560

PATIENT
  Age: 21 Year
  Sex: Female
  Weight: 45 kg

DRUGS (203)
  1. TACROLIMUS. [Suspect]
     Active Substance: TACROLIMUS
     Route: 048
     Dates: start: 20120321, end: 20120714
  2. PREDNISOLONE. [Suspect]
     Active Substance: PREDNISOLONE
     Route: 048
     Dates: start: 20090709, end: 20091007
  3. PREDNISOLONE. [Suspect]
     Active Substance: PREDNISOLONE
     Route: 048
     Dates: start: 20140108, end: 20140205
  4. PREDNISOLONE. [Suspect]
     Active Substance: PREDNISOLONE
     Route: 048
     Dates: start: 20140226, end: 20140325
  5. PREDNISOLONE. [Suspect]
     Active Substance: PREDNISOLONE
     Route: 048
     Dates: start: 20140924, end: 20141125
  6. METHYLPREDNISOLONE SODIUM SUCCINATE. [Suspect]
     Active Substance: METHYLPREDNISOLONE SODIUM SUCCINATE
     Route: 065
     Dates: start: 20120825, end: 20120827
  7. DIOVAN [Concomitant]
     Active Substance: VALSARTAN
     Route: 048
     Dates: start: 20120201, end: 20120715
  8. DIOVAN [Concomitant]
     Active Substance: VALSARTAN
     Route: 048
     Dates: start: 20120805, end: 20120807
  9. FOSAMAC [Concomitant]
     Active Substance: ALENDRONATE SODIUM
     Route: 048
     Dates: start: 20120813, end: 20120924
  10. HYALEIN [Concomitant]
     Active Substance: HYALURONATE SODIUM
     Indication: SYSTEMIC LUPUS ERYTHEMATOSUS
     Dosage: UNK UNK, UNKNOWN FREQ.
     Route: 047
     Dates: start: 20090218, end: 20110706
  11. BREDININ [Concomitant]
     Active Substance: MIZORIBINE
     Route: 048
     Dates: start: 20120614, end: 20120715
  12. THIATON [Concomitant]
     Active Substance: TIQUIZIUM BROMIDE
     Indication: GASTROENTERITIS
     Route: 048
     Dates: start: 20091104, end: 20091201
  13. BONOTEO [Concomitant]
     Active Substance: MINODRONIC ACID
     Route: 048
     Dates: start: 20130605, end: 20150410
  14. DORMICUM [Concomitant]
     Indication: PRODUCT USED FOR UNKNOWN INDICATION
     Route: 065
     Dates: start: 20120716, end: 20120716
  15. CEFAMEZIN ? [Concomitant]
     Indication: PROPHYLAXIS
     Route: 065
     Dates: start: 20120716, end: 20120718
  16. PENTCILLIN [Concomitant]
     Active Substance: PIPERACILLIN SODIUM
     Route: 065
     Dates: start: 20120825, end: 20120825
  17. OMEPRAL                            /00661202/ [Concomitant]
     Active Substance: OMEPRAZOLE SODIUM
     Indication: PROPHYLAXIS
     Route: 065
     Dates: start: 20120719, end: 20120725
  18. LASIX [Concomitant]
     Active Substance: FUROSEMIDE
     Route: 065
     Dates: start: 20120903, end: 20120903
  19. LASIX [Concomitant]
     Active Substance: FUROSEMIDE
     Route: 048
     Dates: start: 20120905, end: 20120907
  20. LASIX [Concomitant]
     Active Substance: FUROSEMIDE
     Route: 048
     Dates: start: 20120908, end: 20120910
  21. KENKETU GLOVENIN-I [Concomitant]
     Active Substance: HUMAN IMMUNOGLOBULIN G
     Indication: LUPUS NEPHRITIS
     Route: 065
     Dates: start: 20120722, end: 20120724
  22. NEOAMIYU [Concomitant]
     Active Substance: AMINO ACIDS
     Indication: PRODUCT USED FOR UNKNOWN INDICATION
     Route: 065
     Dates: start: 20120725, end: 20120729
  23. NEOLAMIN 3B                        /00520001/ [Concomitant]
     Route: 065
     Dates: start: 20120825, end: 20120826
  24. ASPARA K [Concomitant]
     Active Substance: POTASSIUM ASPARTATE
     Route: 048
     Dates: start: 20120830, end: 20130205
  25. AMLODIN [Concomitant]
     Active Substance: AMLODIPINE BESYLATE
     Route: 048
     Dates: start: 20170822
  26. EDIROL [Concomitant]
     Active Substance: ELDECALCITOL
     Indication: PROPHYLAXIS
     Dosage: 0.75 ?G, ONCE DAILY
     Route: 048
     Dates: start: 20121004, end: 20121204
  27. ALLEGRA [Concomitant]
     Active Substance: FEXOFENADINE HYDROCHLORIDE
     Indication: RHINITIS ALLERGIC
     Route: 048
     Dates: start: 20111019, end: 20111023
  28. FESIN                              /00023550/ [Concomitant]
     Active Substance: IRON SUCROSE
     Route: 065
     Dates: start: 20130807, end: 20130807
  29. SODIUM FERROUS CITRATE [Concomitant]
     Active Substance: SODIUM FERROUS CITRATE
     Route: 048
     Dates: start: 20161213, end: 20170306
  30. SODIUM FERROUS CITRATE [Concomitant]
     Active Substance: SODIUM FERROUS CITRATE
     Route: 048
     Dates: start: 20171212
  31. OLMETEC [Concomitant]
     Active Substance: OLMESARTAN MEDOXOMIL
     Indication: LUPUS NEPHRITIS
  32. TACROLIMUS. [Suspect]
     Active Substance: TACROLIMUS
     Route: 048
     Dates: start: 20090218, end: 20111018
  33. PREDNISOLONE. [Suspect]
     Active Substance: PREDNISOLONE
     Route: 048
     Dates: start: 20121205, end: 20130115
  34. PREDNISOLONE. [Suspect]
     Active Substance: PREDNISOLONE
     Route: 048
     Dates: start: 20130116, end: 20130205
  35. METHYLPREDNISOLONE SODIUM SUCCINATE. [Suspect]
     Active Substance: METHYLPREDNISOLONE SODIUM SUCCINATE
     Indication: LUPUS NEPHRITIS
     Route: 065
     Dates: start: 20120509, end: 20120509
  36. METHYLPREDNISOLONE SODIUM SUCCINATE. [Suspect]
     Active Substance: METHYLPREDNISOLONE SODIUM SUCCINATE
     Route: 065
     Dates: start: 20120524, end: 20120524
  37. METHYLPREDNISOLONE SODIUM SUCCINATE. [Suspect]
     Active Substance: METHYLPREDNISOLONE SODIUM SUCCINATE
     Route: 065
     Dates: start: 20120606, end: 20120606
  38. FOSAMAC [Concomitant]
     Active Substance: ALENDRONATE SODIUM
     Indication: PROPHYLAXIS
     Route: 048
     Dates: end: 20090702
  39. KAKKON-TO [Concomitant]
     Active Substance: HERBS\ROOTS
     Route: 048
     Dates: start: 20110209, end: 20110213
  40. FERROMIA [Concomitant]
     Active Substance: SODIUM FERROUS CITRATE
     Route: 048
     Dates: start: 20130605, end: 20131105
  41. BONOTEO [Concomitant]
     Active Substance: MINODRONIC ACID
     Indication: PROPHYLAXIS
     Route: 048
     Dates: start: 20120321, end: 20120508
  42. DIART [Concomitant]
     Active Substance: AZOSEMIDE
     Indication: LUPUS NEPHRITIS
     Route: 048
     Dates: start: 20120509, end: 20120715
  43. VEEN D [Concomitant]
     Active Substance: CALCIUM CHLORIDE\DEXTROSE\POTASSIUM CHLORIDE\SODIUM ACETATE\SODIUM CHLORIDE
     Indication: NUTRITIONAL SUPPLEMENTATION
     Route: 065
     Dates: start: 20120825, end: 20120826
  44. PENTCILLIN [Concomitant]
     Active Substance: PIPERACILLIN SODIUM
     Indication: INFECTION PROPHYLAXIS
     Route: 065
     Dates: start: 20120718, end: 20120719
  45. PHYSIO [Concomitant]
     Indication: PRODUCT USED FOR UNKNOWN INDICATION
     Route: 065
     Dates: start: 20120719, end: 20120719
  46. LASIX [Concomitant]
     Active Substance: FUROSEMIDE
     Route: 048
     Dates: start: 20120815, end: 20120815
  47. CATABON [Concomitant]
     Active Substance: DOPAMINE HYDROCHLORIDE
     Route: 065
     Dates: start: 20120725, end: 20120726
  48. ADONA                              /00056903/ [Concomitant]
     Active Substance: CARBAZOCHROME SODIUM SULFONATE
     Indication: HAEMORRHAGE PROPHYLAXIS
     Route: 048
     Dates: start: 20121004, end: 20121106
  49. UROMITEXAN [Concomitant]
     Active Substance: MESNA
     Route: 065
     Dates: start: 20120912, end: 20120912
  50. ALFAROL [Concomitant]
     Active Substance: ALFACALCIDOL
     Indication: OSTEONECROSIS
     Route: 048
     Dates: start: 20141126
  51. VENOGLOBULIN [Concomitant]
     Active Substance: HUMAN IMMUNOGLOBULIN G
     Indication: LUPUS NEPHRITIS
     Route: 065
     Dates: start: 20120825, end: 20120827
  52. WYTENS                             /00658402/ [Concomitant]
     Active Substance: GUANABENZ ACETATE
     Indication: LUPUS NEPHRITIS
     Route: 048
     Dates: start: 20120915
  53. FEBURIC [Concomitant]
     Active Substance: FEBUXOSTAT
     Indication: HYPERURICAEMIA
     Route: 048
     Dates: start: 20121017, end: 20140129
  54. FEBURIC [Concomitant]
     Active Substance: FEBUXOSTAT
     Indication: PROPHYLAXIS
  55. SODIUM FERROUS CITRATE [Concomitant]
     Active Substance: SODIUM FERROUS CITRATE
     Indication: IRON DEFICIENCY ANAEMIA
     Route: 048
     Dates: start: 20160202, end: 20160411
  56. PREDNISOLONE. [Suspect]
     Active Substance: PREDNISOLONE
     Indication: LUPUS NEPHRITIS
     Route: 048
     Dates: end: 20090218
  57. PREDNISOLONE. [Suspect]
     Active Substance: PREDNISOLONE
     Route: 048
     Dates: start: 20091008, end: 20100803
  58. PREDNISOLONE. [Suspect]
     Active Substance: PREDNISOLONE
     Route: 048
     Dates: start: 20120509, end: 20120715
  59. PREDNISOLONE. [Suspect]
     Active Substance: PREDNISOLONE
     Route: 048
     Dates: start: 20120904, end: 20120918
  60. PERSANTIN [Suspect]
     Active Substance: DIPYRIDAMOLE
     Indication: LUPUS NEPHRITIS
     Route: 048
     Dates: end: 20090303
  61. LOXONIN [Concomitant]
     Active Substance: LOXOPROFEN SODIUM
     Indication: HEADACHE
     Route: 048
     Dates: start: 20090218, end: 20090407
  62. BREDININ [Concomitant]
     Active Substance: MIZORIBINE
     Route: 048
     Dates: start: 20120807, end: 20120813
  63. TARIVID [Concomitant]
     Active Substance: OFLOXACIN
     Indication: OTITIS EXTERNA
     Dosage: 6 TO 8 DROPS DAILY
     Route: 001
     Dates: start: 20110309, end: 20110413
  64. ENDOXAN                            /00021102/ [Concomitant]
     Active Substance: CYCLOPHOSPHAMIDE
     Route: 065
     Dates: start: 20120824, end: 20120824
  65. DIART [Concomitant]
     Active Substance: AZOSEMIDE
     Route: 048
     Dates: start: 20121107, end: 20130205
  66. PRIMPERAN [Concomitant]
     Active Substance: METOCLOPRAMIDE HYDROCHLORIDE
     Indication: PRODUCT USED FOR UNKNOWN INDICATION
     Route: 065
     Dates: start: 20120716, end: 20120716
  67. LASIX [Concomitant]
     Active Substance: FUROSEMIDE
     Route: 065
     Dates: start: 20120722, end: 20120722
  68. LASIX [Concomitant]
     Active Substance: FUROSEMIDE
     Route: 065
     Dates: start: 20120725, end: 20120726
  69. LASIX [Concomitant]
     Active Substance: FUROSEMIDE
     Route: 065
     Dates: start: 20120729, end: 20120730
  70. LASIX [Concomitant]
     Active Substance: FUROSEMIDE
     Route: 065
     Dates: start: 20120825, end: 20120829
  71. LASIX [Concomitant]
     Active Substance: FUROSEMIDE
     Indication: LUPUS NEPHRITIS
     Dosage: 20-40 MG/DAY
     Route: 048
     Dates: start: 20120731, end: 20120806
  72. LASIX [Concomitant]
     Active Substance: FUROSEMIDE
     Route: 048
     Dates: start: 20121004, end: 20121016
  73. CATABON [Concomitant]
     Active Substance: DOPAMINE HYDROCHLORIDE
     Indication: PRODUCT USED FOR UNKNOWN INDICATION
     Route: 065
     Dates: start: 20120720, end: 20120721
  74. LIPITOR [Concomitant]
     Active Substance: ATORVASTATIN CALCIUM
     Indication: PROPHYLAXIS
  75. ADONA                              /00056903/ [Concomitant]
     Active Substance: CARBAZOCHROME SODIUM SULFONATE
     Indication: PURPURA
     Route: 048
     Dates: start: 20130904, end: 20131001
  76. ALFAROL [Concomitant]
     Active Substance: ALFACALCIDOL
     Indication: PROPHYLAXIS
     Route: 048
     Dates: start: 20120811, end: 20121003
  77. FLUITRAN [Concomitant]
     Active Substance: TRICHLORMETHIAZIDE
     Indication: LUPUS NEPHRITIS
     Route: 048
     Dates: start: 20120901, end: 20120911
  78. TRANSAMIN [Concomitant]
     Active Substance: TRANEXAMIC ACID
     Indication: RHINITIS ALLERGIC
     Route: 048
     Dates: start: 20111019, end: 20111023
  79. CELLCEPT [Concomitant]
     Active Substance: MYCOPHENOLATE MOFETIL\MYCOPHENOLATE MOFETIL HYDROCHLORIDE
     Route: 048
     Dates: start: 20161115, end: 20170425
  80. TACROLIMUS. [Suspect]
     Active Substance: TACROLIMUS
     Route: 048
     Dates: start: 20081203, end: 20090113
  81. TACROLIMUS. [Suspect]
     Active Substance: TACROLIMUS
     Route: 048
     Dates: start: 20090114, end: 20090217
  82. PREDNISOLONE. [Suspect]
     Active Substance: PREDNISOLONE
     Route: 048
     Dates: start: 20090219, end: 20090408
  83. PREDNISOLONE. [Suspect]
     Active Substance: PREDNISOLONE
     Route: 048
     Dates: start: 20100804, end: 20110111
  84. PREDNISOLONE. [Suspect]
     Active Substance: PREDNISOLONE
     Route: 048
     Dates: start: 20110112, end: 20110524
  85. PREDNISOLONE. [Suspect]
     Active Substance: PREDNISOLONE
     Route: 048
     Dates: start: 20121017, end: 20121106
  86. PREDNISOLONE. [Suspect]
     Active Substance: PREDNISOLONE
     Route: 048
     Dates: start: 20131211, end: 20140107
  87. PREDNISOLONE. [Suspect]
     Active Substance: PREDNISOLONE
     Route: 048
     Dates: start: 20140423, end: 20140617
  88. DIOVAN [Concomitant]
     Active Substance: VALSARTAN
     Indication: LUPUS NEPHRITIS
     Route: 048
     Dates: end: 20120131
  89. FERROMIA [Concomitant]
     Active Substance: SODIUM FERROUS CITRATE
     Indication: PROPHYLAXIS
     Route: 048
     Dates: start: 20110921, end: 20120715
  90. BREDININ [Concomitant]
     Active Substance: MIZORIBINE
     Route: 048
     Dates: start: 20120814, end: 20120820
  91. ISODINE [Concomitant]
     Active Substance: POVIDONE-IODINE
     Indication: PROPHYLAXIS
     Dosage: ADEQUATE DOSE DAILY
     Route: 061
     Dates: start: 20110921, end: 20120131
  92. ENDOXAN                            /00021102/ [Concomitant]
     Active Substance: CYCLOPHOSPHAMIDE
     Route: 065
     Dates: start: 20120912, end: 20120912
  93. DIQUAS [Concomitant]
     Active Substance: DIQUAFOSOL TETRASODIUM
     Indication: SYSTEMIC LUPUS ERYTHEMATOSUS
     Dosage: UNK UNK, THRICE DAILY
     Route: 047
     Dates: start: 20120509, end: 20120605
  94. HYALEIN MINI [Concomitant]
     Active Substance: HYALURONATE SODIUM
     Indication: SYSTEMIC LUPUS ERYTHEMATOSUS
     Dosage: UNK UNK, THRICE DAILY
     Route: 047
     Dates: start: 20120509, end: 20120605
  95. GASTER [Concomitant]
     Active Substance: FAMOTIDINE
     Indication: PROPHYLAXIS
     Route: 065
     Dates: start: 20120716, end: 20120718
  96. GLYCEREB [Concomitant]
     Indication: SUBARACHNOID HAEMORRHAGE
     Route: 065
     Dates: start: 20120716, end: 20120716
  97. METILON [Concomitant]
     Active Substance: METAMIZOLE SODIUM
     Indication: PRODUCT USED FOR UNKNOWN INDICATION
     Route: 065
     Dates: start: 20120718, end: 20120718
  98. VEEN-F [Concomitant]
     Active Substance: CALCIUM CHLORIDE\MAGNESIUM CHLORIDE\POTASSIUM CHLORIDE\SODIUM ACETATE\SODIUM CHLORIDE
     Indication: PRODUCT USED FOR UNKNOWN INDICATION
     Dosage: UNK, UNK, UNKNOWN FREQ.
     Route: 065
     Dates: start: 20120716, end: 20120719
  99. LASIX [Concomitant]
     Active Substance: FUROSEMIDE
     Route: 048
     Dates: start: 20120822, end: 20120824
  100. NEXIUM [Concomitant]
     Active Substance: ESOMEPRAZOLE MAGNESIUM
     Indication: PROPHYLAXIS
     Route: 048
     Dates: start: 20120726, end: 20120824
  101. LIPITOR [Concomitant]
     Active Substance: ATORVASTATIN CALCIUM
     Indication: HYPERLIPIDAEMIA
     Route: 048
     Dates: start: 20120807, end: 20160822
  102. CELLCEPT [Concomitant]
     Active Substance: MYCOPHENOLATE MOFETIL\MYCOPHENOLATE MOFETIL HYDROCHLORIDE
     Indication: LUPUS NEPHRITIS
     Route: 048
     Dates: start: 20161004, end: 20161114
  103. CELLCEPT [Concomitant]
     Active Substance: MYCOPHENOLATE MOFETIL\MYCOPHENOLATE MOFETIL HYDROCHLORIDE
     Route: 048
     Dates: start: 20170426
  104. OLMETEC [Concomitant]
     Active Substance: OLMESARTAN MEDOXOMIL
     Indication: LUPUS NEPHRITIS
     Route: 048
     Dates: start: 20161115, end: 20180416
  105. TACROLIMUS. [Suspect]
     Active Substance: TACROLIMUS
     Indication: LUPUS NEPHRITIS
     Route: 048
     Dates: start: 20081105, end: 20081202
  106. PREDNISOLONE. [Suspect]
     Active Substance: PREDNISOLONE
     Route: 048
     Dates: start: 20120724, end: 20120820
  107. PREDNISOLONE. [Suspect]
     Active Substance: PREDNISOLONE
     Route: 048
     Dates: start: 20120919, end: 20121003
  108. PREDNISOLONE. [Suspect]
     Active Substance: PREDNISOLONE
     Route: 048
     Dates: start: 20130206, end: 20130409
  109. PREDNISOLONE. [Suspect]
     Active Substance: PREDNISOLONE
     Route: 048
     Dates: start: 20140326, end: 20140422
  110. PREDNISOLONE. [Suspect]
     Active Substance: PREDNISOLONE
     Route: 048
     Dates: start: 20140618, end: 20140923
  111. PREDNISOLONE. [Suspect]
     Active Substance: PREDNISOLONE
     Route: 048
     Dates: start: 20150127, end: 20170821
  112. PREDNISOLONE SODIUM SUCCINATE [Suspect]
     Active Substance: PREDNISOLONE SODIUM SUCCINATE
     Route: 065
     Dates: start: 20120718, end: 20120723
  113. PREDNISOLONE SODIUM SUCCINATE [Suspect]
     Active Substance: PREDNISOLONE SODIUM SUCCINATE
     Route: 065
     Dates: start: 20120828, end: 20120903
  114. PERSANTIN [Suspect]
     Active Substance: DIPYRIDAMOLE
     Route: 048
     Dates: start: 20090304, end: 20120715
  115. BREDININ [Concomitant]
     Active Substance: MIZORIBINE
     Indication: LUPUS NEPHRITIS
     Route: 048
     Dates: start: 20110921, end: 20120613
  116. BREDININ [Concomitant]
     Active Substance: MIZORIBINE
     Route: 048
     Dates: start: 20120821, end: 20160822
  117. MIYA-BM [Concomitant]
     Active Substance: CLOSTRIDIUM BUTYRICUM SPORES STRAIN M-55
     Indication: PROPHYLAXIS
     Route: 048
     Dates: start: 20110209, end: 20110213
  118. PENTAGIN                           /00052102/ [Concomitant]
     Active Substance: PENTAZOCINE HYDROCHLORIDE
     Indication: PRODUCT USED FOR UNKNOWN INDICATION
     Route: 065
     Dates: start: 20120716, end: 20120716
  119. VEEN-F [Concomitant]
     Active Substance: CALCIUM CHLORIDE\MAGNESIUM CHLORIDE\POTASSIUM CHLORIDE\SODIUM ACETATE\SODIUM CHLORIDE
     Route: 065
     Dates: start: 20120809, end: 20120809
  120. LASIX [Concomitant]
     Active Substance: FUROSEMIDE
     Route: 065
     Dates: start: 20120830, end: 20120902
  121. LASIX [Concomitant]
     Active Substance: FUROSEMIDE
     Route: 048
     Dates: start: 20120904, end: 20120904
  122. PANTOSIN [Concomitant]
     Active Substance: PANTETHINE
     Indication: PROPHYLAXIS
     Route: 048
     Dates: start: 20120724, end: 20120801
  123. GLUCOSE [Concomitant]
     Active Substance: DEXTROSE
     Indication: PRODUCT USED FOR UNKNOWN INDICATION
     Route: 065
     Dates: start: 20120725, end: 20120729
  124. ASPARA POTASSIUM [Concomitant]
     Active Substance: POTASSIUM ASPARTATE
     Route: 065
     Dates: start: 20120825, end: 20120826
  125. UROMITEXAN [Concomitant]
     Active Substance: MESNA
     Route: 065
     Dates: start: 20120824, end: 20120824
  126. BAKTAR [Concomitant]
     Active Substance: SULFAMETHOXAZOLE\TRIMETHOPRIM
     Indication: PROPHYLAXIS
     Route: 048
     Dates: start: 20120824, end: 20121003
  127. FESIN                              /00023550/ [Concomitant]
     Active Substance: IRON SUCROSE
     Indication: IRON DEFICIENCY ANAEMIA
     Route: 065
     Dates: start: 20120728, end: 20120730
  128. CELLCEPT [Concomitant]
     Active Substance: MYCOPHENOLATE MOFETIL\MYCOPHENOLATE MOFETIL HYDROCHLORIDE
     Indication: LUPUS NEPHRITIS
     Route: 048
     Dates: start: 20160823, end: 20161003
  129. PREDNISOLONE. [Suspect]
     Active Substance: PREDNISOLONE
     Route: 048
     Dates: start: 20090611, end: 20090708
  130. PREDNISOLONE. [Suspect]
     Active Substance: PREDNISOLONE
     Route: 048
     Dates: start: 20110525, end: 20120418
  131. PREDNISOLONE. [Suspect]
     Active Substance: PREDNISOLONE
     Route: 048
     Dates: start: 20140206, end: 20140225
  132. DIOVAN [Concomitant]
     Active Substance: VALSARTAN
     Route: 048
     Dates: start: 20120808, end: 20130802
  133. ZANTAC [Concomitant]
     Active Substance: RANITIDINE HYDROCHLORIDE
     Indication: PROPHYLAXIS
     Route: 048
     Dates: end: 20120715
  134. HYALEIN [Concomitant]
     Active Substance: HYALURONATE SODIUM
     Dosage: UNK UNK, THRICE DAILY
     Route: 047
     Dates: start: 20110707, end: 20111220
  135. ENDOXAN                            /00021102/ [Concomitant]
     Active Substance: CYCLOPHOSPHAMIDE
     Indication: LUPUS NEPHRITIS
     Route: 065
     Dates: start: 20120809, end: 20120809
  136. MYTEAR                             /00629201/ [Concomitant]
     Indication: SYSTEMIC LUPUS ERYTHEMATOSUS
     Dosage: UNK UNK, 4 TIMES DAILY
     Route: 047
     Dates: start: 20111221, end: 20120131
  137. BONOTEO [Concomitant]
     Active Substance: MINODRONIC ACID
     Indication: OSTEONECROSIS
     Route: 048
     Dates: start: 20121004, end: 20130312
  138. PERDIPINE [Concomitant]
     Active Substance: NICARDIPINE HYDROCHLORIDE
     Indication: PRODUCT USED FOR UNKNOWN INDICATION
     Route: 065
     Dates: start: 20120715, end: 20120715
  139. PERDIPINE [Concomitant]
     Active Substance: NICARDIPINE HYDROCHLORIDE
     Route: 065
     Dates: start: 20120716, end: 20120719
  140. VEEN D [Concomitant]
     Active Substance: CALCIUM CHLORIDE\DEXTROSE\POTASSIUM CHLORIDE\SODIUM ACETATE\SODIUM CHLORIDE
     Indication: PROPHYLAXIS AGAINST DEHYDRATION
     Route: 065
     Dates: start: 20120719, end: 20120719
  141. ALBUMINAR [Concomitant]
     Active Substance: ALBUMIN HUMAN
     Indication: LUPUS NEPHRITIS
     Route: 065
     Dates: start: 20120717, end: 20120718
  142. LASIX [Concomitant]
     Active Substance: FUROSEMIDE
     Indication: LUPUS NEPHRITIS
     Route: 065
     Dates: start: 20120719, end: 20120719
  143. LASIX [Concomitant]
     Active Substance: FUROSEMIDE
     Route: 065
     Dates: start: 20120727, end: 20120727
  144. NU-LOTAN [Concomitant]
     Active Substance: LOSARTAN POTASSIUM
     Indication: LUPUS NEPHRITIS
     Route: 048
     Dates: start: 20120802, end: 20121003
  145. AMLODIN [Concomitant]
     Active Substance: AMLODIPINE BESYLATE
     Route: 048
     Dates: start: 20120817, end: 20170821
  146. ALDACTONE A [Concomitant]
     Active Substance: SPIRONOLACTONE
     Route: 048
     Dates: start: 20120904, end: 20120904
  147. MUCOSOLVAN [Concomitant]
     Active Substance: AMBROXOL HYDROCHLORIDE
     Indication: RHINITIS ALLERGIC
     Route: 048
     Dates: start: 20111019, end: 20111023
  148. ELDECALCITOL [Concomitant]
     Active Substance: ELDECALCITOL
     Indication: OSTEONECROSIS
     Dosage: 0.75 ?G, ONCE DAILY
     Route: 065
     Dates: start: 20130703, end: 20141126
  149. ALFACALCIDOL [Concomitant]
     Active Substance: ALFACALCIDOL
     Indication: OSTEONECROSIS
     Route: 065
     Dates: start: 20141126
  150. TACROLIMUS. [Suspect]
     Active Substance: TACROLIMUS
     Route: 048
     Dates: start: 20120723, end: 20120727
  151. TACROLIMUS. [Suspect]
     Active Substance: TACROLIMUS
     Route: 048
     Dates: start: 20120904, end: 20120906
  152. TACROLIMUS. [Suspect]
     Active Substance: TACROLIMUS
     Route: 048
     Dates: start: 20120907
  153. PREDNISOLONE. [Suspect]
     Active Substance: PREDNISOLONE
     Route: 048
     Dates: start: 20090409, end: 20090513
  154. PREDNISOLONE. [Suspect]
     Active Substance: PREDNISOLONE
     Route: 048
     Dates: start: 20120821, end: 20120824
  155. PREDNISOLONE. [Suspect]
     Active Substance: PREDNISOLONE
     Route: 048
     Dates: start: 20141126, end: 20150126
  156. PREDNISOLONE. [Suspect]
     Active Substance: PREDNISOLONE
     Route: 048
     Dates: start: 20170822
  157. PREDNISOLONE SODIUM SUCCINATE [Suspect]
     Active Substance: PREDNISOLONE SODIUM SUCCINATE
     Indication: LUPUS NEPHRITIS
     Route: 065
     Dates: start: 20120716, end: 20120717
  158. FOSAMAC [Concomitant]
     Active Substance: ALENDRONATE SODIUM
     Route: 048
     Dates: start: 20100512, end: 20111018
  159. KAKKON-TO [Concomitant]
     Active Substance: HERBS\ROOTS
     Indication: NASOPHARYNGITIS
     Route: 048
     Dates: start: 20081105, end: 20081110
  160. FLOMOX [Concomitant]
     Active Substance: CEFCAPENE PIVOXIL HYDROCHLORIDE HYDRATE
     Indication: PRODUCT USED FOR UNKNOWN INDICATION
     Route: 048
     Dates: start: 20081105, end: 20081110
  161. FERROMIA [Concomitant]
     Active Substance: SODIUM FERROUS CITRATE
     Indication: IRON DEFICIENCY ANAEMIA
     Route: 048
     Dates: start: 20081203, end: 20101109
  162. FERROMIA [Concomitant]
     Active Substance: SODIUM FERROUS CITRATE
     Indication: IRON DEFICIENCY ANAEMIA
     Route: 048
     Dates: start: 20120731, end: 20121016
  163. GASLON [Concomitant]
     Active Substance: IRSOGLADINE MALEATE
     Indication: PROPHYLAXIS
     Route: 048
     Dates: start: 20091104, end: 20120715
  164. EVOXAC [Concomitant]
     Active Substance: CEVIMELINE HYDROCHLORIDE
     Indication: SYSTEMIC LUPUS ERYTHEMATOSUS
     Dosage: UNK UNK, UNKNOWN FREQ.
     Route: 048
     Dates: start: 20100901, end: 20101005
  165. EVOXAC [Concomitant]
     Active Substance: CEVIMELINE HYDROCHLORIDE
     Indication: SJOGREN^S SYNDROME
  166. CHLOMY [Concomitant]
     Active Substance: CHLORAMPHENICOL
     Indication: OTITIS EXTERNA
     Route: 061
     Dates: start: 20110309, end: 20110309
  167. HANP [Concomitant]
     Active Substance: CARPERITIDE
     Indication: LUPUS NEPHRITIS
     Route: 065
     Dates: start: 20120719, end: 20120727
  168. LASIX [Concomitant]
     Active Substance: FUROSEMIDE
     Route: 048
     Dates: start: 20120813, end: 20120814
  169. LASIX [Concomitant]
     Active Substance: FUROSEMIDE
     Route: 048
     Dates: start: 20120820, end: 20120820
  170. ASPARA K [Concomitant]
     Active Substance: POTASSIUM ASPARTATE
     Indication: MINERAL SUPPLEMENTATION
     Dosage: UNK UNK, UNKNOWN FREQ.
     Route: 048
     Dates: start: 20120807, end: 20120824
  171. ADONA                              /00056903/ [Concomitant]
     Active Substance: CARBAZOCHROME SODIUM SULFONATE
     Indication: MENORRHAGIA
     Route: 048
     Dates: start: 20120809, end: 20120812
  172. UROMITEXAN [Concomitant]
     Active Substance: MESNA
     Indication: PROPHYLAXIS
     Route: 065
     Dates: start: 20120809, end: 20120809
  173. ALDACTONE A [Concomitant]
     Active Substance: SPIRONOLACTONE
     Indication: LUPUS NEPHRITIS
     Route: 048
     Dates: start: 20120820, end: 20120824
  174. TANATRIL [Concomitant]
     Active Substance: IMIDAPRIL
     Indication: LUPUS NEPHRITIS
     Route: 048
     Dates: start: 20120821, end: 20120905
  175. BAKTAR [Concomitant]
     Active Substance: SULFAMETHOXAZOLE\TRIMETHOPRIM
     Route: 048
     Dates: start: 20121004, end: 20130604
  176. BAKTAR [Concomitant]
     Active Substance: SULFAMETHOXAZOLE\TRIMETHOPRIM
     Route: 048
     Dates: start: 20130605, end: 20160411
  177. TAKEPRON [Concomitant]
     Active Substance: LANSOPRAZOLE
     Indication: PROPHYLAXIS AGAINST GASTROINTESTINAL ULCER
     Route: 048
     Dates: start: 20120828
  178. EDIROL [Concomitant]
     Active Substance: ELDECALCITOL
     Indication: OSTEONECROSIS
     Dosage: 0.75 ?G, ONCE DAILY
     Route: 048
     Dates: start: 20130703, end: 20141125
  179. PRALIA [Concomitant]
     Active Substance: DENOSUMAB
     Indication: OSTEONECROSIS
     Route: 058
     Dates: start: 20150519
  180. PREDNISOLONE. [Suspect]
     Active Substance: PREDNISOLONE
     Route: 048
     Dates: start: 20090514, end: 20090610
  181. PREDNISOLONE. [Suspect]
     Active Substance: PREDNISOLONE
     Route: 048
     Dates: start: 20120419, end: 20120508
  182. PREDNISOLONE. [Suspect]
     Active Substance: PREDNISOLONE
     Route: 048
     Dates: start: 20121004, end: 20121016
  183. PREDNISOLONE. [Suspect]
     Active Substance: PREDNISOLONE
     Route: 048
     Dates: start: 20121107, end: 20121204
  184. PREDNISOLONE. [Suspect]
     Active Substance: PREDNISOLONE
     Route: 048
     Dates: start: 20130410, end: 20131210
  185. PERSANTINE [Suspect]
     Active Substance: DIPYRIDAMOLE
     Indication: LUPUS NEPHRITIS
     Route: 048
     Dates: start: 20120811
  186. KAKKON-TO [Concomitant]
     Active Substance: HERBS\ROOTS
     Route: 048
     Dates: start: 20090610, end: 20090616
  187. PL [Concomitant]
     Active Substance: ACETAMINOPHEN\CAFFEINE\PROMETHAZINE\SALICYLAMIDE
     Indication: PRODUCT USED FOR UNKNOWN INDICATION
     Route: 048
     Dates: start: 20081105, end: 20081110
  188. FERROMIA [Concomitant]
     Active Substance: SODIUM FERROUS CITRATE
     Route: 048
     Dates: start: 20130206, end: 20130312
  189. RINDERON V [Concomitant]
     Active Substance: BETAMETHASONE VALERATE
     Indication: OTITIS EXTERNA
     Dosage: 6 TO 8 DROPS DAILY
     Route: 001
     Dates: start: 20110309, end: 20110413
  190. DIART [Concomitant]
     Active Substance: AZOSEMIDE
     Route: 048
     Dates: start: 20121017, end: 20121106
  191. CEFAMEZIN ? [Concomitant]
     Route: 065
     Dates: start: 20120808, end: 20120808
  192. ALBUMINAR [Concomitant]
     Active Substance: ALBUMIN HUMAN
     Route: 065
     Dates: start: 20120725, end: 20120725
  193. LASIX [Concomitant]
     Active Substance: FUROSEMIDE
     Route: 065
     Dates: start: 20120728, end: 20120728
  194. LASIX [Concomitant]
     Active Substance: FUROSEMIDE
     Route: 065
     Dates: start: 20120810, end: 20120810
  195. LASIX [Concomitant]
     Active Substance: FUROSEMIDE
     Route: 048
     Dates: start: 20120807, end: 20120812
  196. LASIX [Concomitant]
     Active Substance: FUROSEMIDE
     Route: 048
     Dates: start: 20130206, end: 20130702
  197. NEOLAMIN 3B                        /00520001/ [Concomitant]
     Indication: NUTRITIONAL SUPPLEMENTATION
     Route: 065
     Dates: start: 20120725, end: 20120729
  198. ASPARA POTASSIUM [Concomitant]
     Active Substance: POTASSIUM ASPARTATE
     Indication: MINERAL SUPPLEMENTATION
     Route: 065
     Dates: start: 20120726, end: 20120729
  199. AMLODIN [Concomitant]
     Active Substance: AMLODIPINE BESYLATE
     Indication: LUPUS NEPHRITIS
     Route: 048
     Dates: start: 20120808, end: 20120816
  200. TANATRIL [Concomitant]
     Active Substance: IMIDAPRIL
     Route: 048
     Dates: start: 20120906, end: 20160201
  201. VENOGLOBULIN [Concomitant]
     Active Substance: HUMAN IMMUNOGLOBULIN G
     Route: 065
     Dates: start: 20120925, end: 20120925
  202. SENNOSIDE                          /00571901/ [Concomitant]
     Active Substance: SENNOSIDES A AND B
     Indication: CONSTIPATION PROPHYLAXIS
     Route: 048
     Dates: start: 20120829, end: 20121016
  203. LOTRIGA [Concomitant]
     Active Substance: OMEGA-3-ACID ETHYL ESTERS
     Indication: PROPHYLAXIS
     Route: 048
     Dates: start: 20160823

REACTIONS (14)
  - Gastroenteritis [Recovered/Resolved]
  - Subarachnoid haemorrhage [Recovering/Resolving]
  - Blood creatine phosphokinase increased [Recovered/Resolved]
  - Iron deficiency anaemia [Recovered/Resolved]
  - Hyperuricaemia [Recovered/Resolved]
  - Iron deficiency anaemia [Not Recovered/Not Resolved]
  - Otitis externa [Recovered/Resolved]
  - Lupus nephritis [Recovered/Resolved]
  - Hyperlipidaemia [Recovered/Resolved]
  - Rhinitis allergic [Recovered/Resolved]
  - Purpura [Recovered/Resolved]
  - Osteonecrosis [Not Recovered/Not Resolved]
  - Menorrhagia [Recovered/Resolved]
  - Nasopharyngitis [Recovered/Resolved]

NARRATIVE: CASE EVENT DATE: 20081203
